FAERS Safety Report 15100488 (Version 1)
Quarter: 2018Q3

REPORT INFORMATION
  Report Type: Report from Study
  Country: None (occurrence: US)
  Receive Date: 20180703
  Receipt Date: 20180703
  Transmission Date: 20181010
  Serious: Yes (Other)
  Sender: FDA-Public Use
  Company Number: US-ABBVIE-18K-163-2402513-00

PATIENT
  Age: 63 Year
  Sex: Male

DRUGS (2)
  1. HUMIRA [Suspect]
     Active Substance: ADALIMUMAB
     Indication: COLITIS ULCERATIVE
     Route: 058
     Dates: start: 20180613, end: 20180613
  2. HUMIRA [Suspect]
     Active Substance: ADALIMUMAB
     Route: 058
     Dates: start: 201806, end: 20180627

REACTIONS (8)
  - Decreased appetite [Not Recovered/Not Resolved]
  - Pollakiuria [Not Recovered/Not Resolved]
  - Middle insomnia [Unknown]
  - Dizziness [Not Recovered/Not Resolved]
  - Drug effect incomplete [Unknown]
  - Headache [Not Recovered/Not Resolved]
  - Loss of consciousness [Unknown]
  - Fall [Unknown]

NARRATIVE: CASE EVENT DATE: 201806
